FAERS Safety Report 7514228-5 (Version None)
Quarter: 2011Q2

REPORT INFORMATION
  Report Type: 
  Country: None (occurrence: None)
  Receive Date: 20110531
  Receipt Date: 20110523
  Transmission Date: 20111010
  Serious: Yes (Hospitalization, Other)
  Sender: FDA-Public Use
  Company Number: US-BAXTER-2011BH017559

PATIENT
  Age: 57 Year
  Sex: Female

DRUGS (4)
  1. METHYLPREDNISOLONE [Concomitant]
     Indication: PERIPHERAL SENSORY NEUROPATHY
     Route: 048
  2. GRANISETRON HCL [Concomitant]
     Indication: PROPHYLAXIS OF NAUSEA AND VOMITING
     Route: 042
  3. MESNA [Concomitant]
     Indication: PROPHYLAXIS
     Route: 042
  4. CYCLOPHOSPHAMIDE [Suspect]
     Indication: PERIPHERAL SENSORY NEUROPATHY
     Route: 042

REACTIONS (2)
  - GRAND MAL CONVULSION [None]
  - WATER INTOXICATION [None]
